FAERS Safety Report 13004300 (Version 1)
Quarter: 2016Q4

REPORT INFORMATION
  Report Type: Report from Study
  Country: CA (occurrence: CA)
  Receive Date: 20161206
  Receipt Date: 20161206
  Transmission Date: 20170207
  Serious: Yes (Other)
  Sender: FDA-Public Use
  Company Number: CA-ROCHE-ITM201506IM018414

PATIENT
  Age: 73 Year
  Sex: Male
  Weight: 81 kg

DRUGS (14)
  1. ASA [Concomitant]
     Active Substance: ASPIRIN
  2. PRIMIDONE. [Concomitant]
     Active Substance: PRIMIDONE
  3. LYRICA [Concomitant]
     Active Substance: PREGABALIN
  4. ESBRIET [Suspect]
     Active Substance: PIRFENIDONE
     Route: 048
     Dates: start: 20130513
  5. ESBRIET [Suspect]
     Active Substance: PIRFENIDONE
     Route: 048
     Dates: start: 20130520
  6. SALOFALK [Concomitant]
     Active Substance: MESALAMINE
  7. ESBRIET [Suspect]
     Active Substance: PIRFENIDONE
     Dosage: TREATMENT MAINTENANCE PACK
     Route: 048
  8. COVERSYL [Concomitant]
     Active Substance: PERINDOPRIL
  9. PREDNISONE. [Concomitant]
     Active Substance: PREDNISONE
  10. ESBRIET [Suspect]
     Active Substance: PIRFENIDONE
     Indication: IDIOPATHIC PULMONARY FIBROSIS
     Route: 048
     Dates: start: 20130506
  11. ACETYLSALICYLIC ACID [Concomitant]
     Active Substance: ASPIRIN
     Route: 065
  12. OXYGEN. [Concomitant]
     Active Substance: OXYGEN
  13. ESBRIET [Suspect]
     Active Substance: PIRFENIDONE
     Route: 048
     Dates: start: 20140110
  14. LYRICA [Concomitant]
     Active Substance: PREGABALIN

REACTIONS (13)
  - Chromaturia [Unknown]
  - Fatigue [Not Recovered/Not Resolved]
  - Abdominal pain upper [Not Recovered/Not Resolved]
  - Aortic arteriosclerosis [Unknown]
  - Back pain [Unknown]
  - Trigeminal neuralgia [Unknown]
  - Weight decreased [Not Recovered/Not Resolved]
  - Arteriosclerosis coronary artery [Unknown]
  - Pulmonary function test decreased [Recovered/Resolved]
  - Chromaturia [Not Recovered/Not Resolved]
  - Retching [Unknown]
  - Nausea [Unknown]
  - Urine abnormality [Unknown]

NARRATIVE: CASE EVENT DATE: 20131206
